FAERS Safety Report 8093259-3 (Version None)
Quarter: 2012Q1

REPORT INFORMATION
  Report Type: 
  Country: None (occurrence: None)
  Receive Date: 20120128
  Receipt Date: 20111019
  Transmission Date: 20120608
  Serious: No
  Sender: FDA-Public Use
  Company Number: US-ABBOTT-11P-163-0730198-00

PATIENT
  Age: 50 Year
  Sex: Female

DRUGS (7)
  1. NAPROXEN [Concomitant]
     Indication: PAIN
     Dosage: PRN
  2. LOTREL [Concomitant]
     Indication: HYPERTENSION
     Dosage: PT DOES NOT TAKE ROUTINELY
     Route: 048
  3. HUMIRA [Suspect]
     Indication: PSORIASIS
     Dates: start: 20110519, end: 20110616
  4. NORVASC [Concomitant]
     Indication: PRODUCT USED FOR UNKNOWN INDICATION
  5. EXCEDRIN [Concomitant]
     Indication: PAIN
     Dosage: PRN
  6. HUMIRA [Suspect]
     Indication: PSORIATIC ARTHROPATHY
  7. EXCEDRIN PM CAPLETS [Concomitant]
     Indication: INSOMNIA
     Dosage: 2 TABS AT BEDTIME
     Route: 048

REACTIONS (7)
  - BLISTER [None]
  - TINEA PEDIS [None]
  - PSORIASIS [None]
  - JOINT SWELLING [None]
  - JOINT STIFFNESS [None]
  - OEDEMA PERIPHERAL [None]
  - ARTHRALGIA [None]
